FAERS Safety Report 10287312 (Version 4)
Quarter: 2014Q4

REPORT INFORMATION
  Report Type: Report from Study
  Country: CA (occurrence: CA)
  Receive Date: 20140709
  Receipt Date: 20141024
  Transmission Date: 20150528
  Serious: Yes (Other)
  Sender: FDA-Public Use
  Company Number: CA-BRISTOL-MYERS SQUIBB COMPANY-21172010

PATIENT
  Age: 81 Year
  Sex: Female

DRUGS (7)
  1. ORENCIA [Suspect]
     Active Substance: ABATACEPT
     Indication: RHEUMATOID ARTHRITIS
     Dosage: BATCH NO:3J75954,EXP DATE:JUL16
     Route: 042
     Dates: start: 20130508
  2. METHOTREXATE [Concomitant]
     Active Substance: METHOTREXATE
  3. HUMULIN NOS [Concomitant]
     Active Substance: INSULIN HUMAN
  4. SYNTHROID [Concomitant]
     Active Substance: LEVOTHYROXINE SODIUM
  5. PREDNISONE. [Concomitant]
     Active Substance: PREDNISONE
  6. ROSUVASTATIN [Concomitant]
     Active Substance: ROSUVASTATIN
  7. CANDESARTAN [Concomitant]
     Active Substance: CANDESARTAN

REACTIONS (4)
  - Arthropathy [Unknown]
  - Pyoderma gangrenosum [Not Recovered/Not Resolved]
  - Contusion [Unknown]
  - Fall [Unknown]

NARRATIVE: CASE EVENT DATE: 201405
